FAERS Safety Report 5757707-3 (Version None)
Quarter: 2008Q2

REPORT INFORMATION
  Report Type: 
  Country: None (occurrence: None)
  Receive Date: 20080529
  Receipt Date: 20080515
  Transmission Date: 20081010
  Serious: Yes (Other)
  Sender: FDA-Public Use
  Company Number: 2008AL005665

PATIENT
  Age: 55 Year
  Sex: Male

DRUGS (2)
  1. TRAMADOL HCL [Suspect]
     Indication: NEURALGIA
     Dosage: 50 MG; QID;
  2. GABAPENTIN [Concomitant]

REACTIONS (3)
  - DEPRESSION [None]
  - DYSURIA [None]
  - FATIGUE [None]
